FAERS Safety Report 6037563-9 (Version None)
Quarter: 2009Q1

REPORT INFORMATION
  Report Type: 
  Country: None (occurrence: None)
  Receive Date: 20090113
  Receipt Date: 20090106
  Transmission Date: 20090719
  Serious: Yes (Other)
  Sender: FDA-Public Use
  Company Number: CHPA2009US00489

PATIENT
  Sex: Male

DRUGS (1)
  1. NICOTINE [Suspect]
     Indication: TOBACCO USER
     Dosage: 21 MG, QD; TRANSDERMAL
     Route: 062

REACTIONS (3)
  - HOMICIDAL IDEATION [None]
  - IRRITABILITY [None]
  - OFF LABEL USE [None]
